FAERS Safety Report 8410906-4 (Version None)
Quarter: 2012Q2

REPORT INFORMATION
  Report Type: 
  Country: None (occurrence: None)
  Receive Date: 20120323
  Receipt Date: 20111201
  Transmission Date: 20120825
  Serious: Yes (Other)
  Sender: FDA-Public Use
  Company Number: 163-21880-11120282

PATIENT
  Age: 83 Year
  Sex: Female
  Weight: 64.8644 kg

DRUGS (21)
  1. AMOXICILLIN-CLAVULANATE (TABLETS) [Concomitant]
  2. OMEPRAZOLE [Concomitant]
  3. DIPHENHYDRAMINE (DIPHENHYDRAMINE) (CAPSULES) [Concomitant]
  4. LOPERAMIDE (LOPERAMIDE) (TABLETS) [Concomitant]
  5. PEGFILGRASTIM (PEGFILGRASTIM) (INJECTION) [Concomitant]
  6. METOPROLOL (METOPROLOL) (TABLETS) [Concomitant]
  7. DOCUSATE SODIUM (DOCUSATE SODIUM) (CAPSULES) [Concomitant]
  8. WARFARIN SODIUM [Concomitant]
  9. IMMUNE GLOBULIN (IMMUNOGLOBULIN) (SOLUTION) [Concomitant]
  10. FLUTICASONE (FLUTICASONE) (NASAL DROPS (INCLUDING NASAL SPRAY) [Concomitant]
  11. ALLOPURINOL [Concomitant]
  12. ONDANSETRON (ONDANSETRON) (TABLETS) [Concomitant]
  13. TOLTERODINE (TOLTERODINE) (CAPSULES) [Concomitant]
  14. PREDNISONE [Concomitant]
  15. LORATADINE (LORATADINE) (TABLETS) [Concomitant]
  16. REVLIMID [Suspect]
     Indication: CHRONIC LYMPHOCYTIC LEUKAEMIA
     Dosage: 5 MG, 1 IN 1 D, PO
     Route: 048
     Dates: start: 20111111, end: 20111130
  17. ACYCLOVIR (ACICLOVIR) (CAPSULES) [Concomitant]
  18. BENDAMUSTINE (BENDAMUSTINE) (SOLUTION) [Concomitant]
  19. GLUCOSAMINE (GLUCOSAMINE) (CAPSULES) [Concomitant]
  20. RITUXIMAB (RITUXIMAB) (SOLUTION) [Concomitant]
  21. CITRACAL + VITAMIN D (CITRACAL + D) (TABLETS) [Concomitant]

REACTIONS (1)
  - PLATELET COUNT DECREASED [None]
